FAERS Safety Report 19053097 (Version 1)
Quarter: 2021Q1

REPORT INFORMATION
  Report Type: Other
  Country: BG (occurrence: BG)
  Receive Date: 20210325
  Receipt Date: 20210325
  Transmission Date: 20210420
  Serious: Yes (Other)
  Sender: FDA-Public Use
  Company Number: BG-CELLTRION INC.-2021BG003785

PATIENT

DRUGS (5)
  1. TRASTUZUMAB (UNKNOWN) [Suspect]
     Active Substance: TRASTUZUMAB
     Indication: BREAST CANCER
     Dosage: 520 MG EVERY 2 WEEKS (MOST RECENT DOSE PRIOR TO THE EVENT: 20 APR 2017)
     Route: 041
     Dates: start: 20170330
  2. DOCETAXEL. [Suspect]
     Active Substance: DOCETAXEL
     Indication: BREAST CANCER
     Dosage: 125 MG EVERY 3 WEEKS (MOST RECENT DOSE WAS ADMINISTERED ON 22 JUN 2017)
     Route: 042
     Dates: start: 20170309
  3. LAPATINIB [Suspect]
     Active Substance: LAPATINIB
     Indication: BREAST CANCER
     Dosage: 1000 MG EVERY DAY (MOST RECENT WAS ADMINISTERED ON 04 APR 2019)
     Route: 048
     Dates: start: 20190114
  4. PERTUZUMAB. [Suspect]
     Active Substance: PERTUZUMAB
     Indication: BREAST CANCER
     Dosage: 840 MG EVERY 3 WEEKS (MOST RECENT DOSE PRIOR TO THE EVENT: 20 APR 2017)
     Route: 042
     Dates: start: 20170330
  5. CAPECITABINE. [Suspect]
     Active Substance: CAPECITABINE
     Indication: BREAST CANCER
     Dosage: 1500 MG (MOST RECENT DOSE PRIOR TO THE EVENT: 22 FEB 2019)
     Route: 048
     Dates: start: 20190104

REACTIONS (4)
  - Off label use [Unknown]
  - Disease progression [Not Recovered/Not Resolved]
  - Product use issue [Unknown]
  - Metastases to central nervous system [Not Recovered/Not Resolved]

NARRATIVE: CASE EVENT DATE: 20170330
